FAERS Safety Report 16396748 (Version 1)
Quarter: 2019Q2

REPORT INFORMATION
  Report Type: Spontaneous
  Country: US (occurrence: US)
  Receive Date: 20190606
  Receipt Date: 20190606
  Transmission Date: 20190711
  Serious: No
  Sender: FDA-Public Use
  Company Number: US-UNITED THERAPEUTICS-UNT-2019-009609

PATIENT
  Sex: Female
  Weight: 77.98 kg

DRUGS (1)
  1. REMODULIN [Suspect]
     Active Substance: TREPROSTINIL
     Indication: PULMONARY ARTERIAL HYPERTENSION
     Dosage: 0.07 ?G/KG, CONTINUING
     Route: 058
     Dates: start: 20150903

REACTIONS (7)
  - Erythema [Unknown]
  - Gastrooesophageal reflux disease [Unknown]
  - Diarrhoea [Unknown]
  - Dizziness [Unknown]
  - Flushing [Unknown]
  - Confusional state [Unknown]
  - Headache [Unknown]
